FAERS Safety Report 10439666 (Version 4)
Quarter: 2015Q1

REPORT INFORMATION
  Report Type: Report from Study
  Country: JP (occurrence: JP)
  Receive Date: 20140908
  Receipt Date: 20150217
  Transmission Date: 20150720
  Serious: Yes (Hospitalization)
  Sender: FDA-Public Use
  Company Number: JP-PFIZER INC-2014245084

PATIENT
  Age: 75 Year
  Sex: Female
  Weight: 49.5 kg

DRUGS (3)
  1. XELJANZ [Suspect]
     Active Substance: TOFACITINIB CITRATE
     Indication: RHEUMATOID ARTHRITIS
     Dosage: 5 MG, 2X/DAY
     Route: 048
     Dates: start: 20140722, end: 20140902
  2. RIMATIL [Concomitant]
     Active Substance: BUCILLAMINE
     Dosage: UNK
  3. PREDONINE [Concomitant]
     Active Substance: PREDNISOLONE\PREDNISOLONE ACETATE\PREDNISOLONE SODIUM SUCCINATE
     Dosage: 10 MG, DAILY
     Route: 048

REACTIONS (2)
  - Urinary tract infection [Recovering/Resolving]
  - Septic shock [Recovering/Resolving]

NARRATIVE: CASE EVENT DATE: 20140902
